FAERS Safety Report 9920823 (Version 2)
Quarter: 2014Q1

REPORT INFORMATION
  Report Type: Spontaneous
  Country: US (occurrence: US)
  Receive Date: 20140224
  Receipt Date: 20140224
  Transmission Date: 20141002
  Serious: Yes (Disabling)
  Sender: FDA-Public Use
  Company Number: US-GE HEALTHCARE MEDICAL DIAGNOSTICS-OSCN-PR-0709S-0357

PATIENT
  Age: 44 Year
  Sex: Female

DRUGS (11)
  1. OMNISCAN [Suspect]
     Indication: SKIN ULCER
     Dates: start: 20011115, end: 20011115
  2. OMNISCAN [Suspect]
     Indication: CELLULITIS
     Dates: start: 20030601, end: 20030601
  3. OMNISCAN [Suspect]
     Indication: RENAL FAILURE
     Dates: start: 20030909, end: 20030909
  4. OMNISCAN [Suspect]
     Indication: PYREXIA
     Dates: start: 20051008, end: 20051008
  5. OMNISCAN [Suspect]
     Indication: LOCAL SWELLING
     Dates: start: 20051009, end: 20051009
  6. OMNISCAN [Suspect]
     Indication: ARTHRALGIA
     Dates: start: 20051115, end: 20051115
  7. OMNISCAN [Suspect]
     Indication: ARTHRALGIA
     Dates: start: 20051121, end: 20051121
  8. OMNISCAN [Suspect]
     Indication: PAIN IN EXTREMITY
     Dates: start: 20050823, end: 20050823
  9. OMNISCAN [Suspect]
     Indication: MYOSITIS
  10. GADOLINIUM (UNSPECIFIED) [Suspect]
     Indication: CELLULITIS
     Dates: start: 20080226, end: 20080226
  11. EPOGEN [Concomitant]

REACTIONS (1)
  - Nephrogenic systemic fibrosis [Not Recovered/Not Resolved]
